APPROVED DRUG PRODUCT: NYSTATIN
Active Ingredient: NYSTATIN
Strength: 100,000 UNITS/GM
Dosage Form/Route: OINTMENT;TOPICAL
Application: A062124 | Product #002 | TE Code: AT
Applicant: FOUGERA PHARMACEUTICALS INC
Approved: Sep 23, 1982 | RLD: No | RS: Yes | Type: RX